FAERS Safety Report 8387470-1 (Version None)
Quarter: 2012Q2

REPORT INFORMATION
  Report Type: 
  Country: None (occurrence: None)
  Receive Date: 20120525
  Receipt Date: 20120522
  Transmission Date: 20120825
  Serious: Yes (Disabling)
  Sender: FDA-Public Use
  Company Number: PHEH2012US010648

PATIENT
  Age: 65 Year
  Sex: Female
  Weight: 57.143 kg

DRUGS (1)
  1. RECLAST [Suspect]
     Indication: OSTEOPOROSIS POSTMENOPAUSAL
     Dosage: 5 MG, ONCE
     Route: 042
     Dates: start: 20110901

REACTIONS (3)
  - ARTHRALGIA [None]
  - OSTEONECROSIS OF JAW [None]
  - PAIN IN JAW [None]
